FAERS Safety Report 25974802 (Version 2)
Quarter: 2025Q4

REPORT INFORMATION
  Report Type: Spontaneous
  Country: US (occurrence: US)
  Receive Date: 20251029
  Receipt Date: 20251104
  Transmission Date: 20260117
  Serious: Yes (Other)
  Sender: DAIICHI
  Company Number: US-DAIICHI SANKYO, INC.-DS-2025-172259-USAA

PATIENT
  Age: 69 Year
  Sex: Male

DRUGS (1)
  1. VANFLYTA [Suspect]
     Active Substance: QUIZARTINIB DIHYDROCHLORIDE
     Indication: Product used for unknown indication
     Dosage: 2 DOSAGE FORM, QD
     Route: 048
     Dates: start: 20250107, end: 20250108

REACTIONS (3)
  - Mucosal inflammation [Unknown]
  - Dysphagia [Unknown]
  - Mental status changes [Unknown]

NARRATIVE: CASE EVENT DATE: 20250101
